FAERS Safety Report 7782632-6 (Version None)
Quarter: 2011Q3

REPORT INFORMATION
  Report Type: 
  Country: None (occurrence: None)
  Receive Date: 20110926
  Receipt Date: 20110909
  Transmission Date: 20111222
  Serious: Yes (Life-Threatening)
  Sender: FDA-Public Use
  Company Number: 2011SGN00146

PATIENT
  Age: 65 Year
  Sex: Male
  Weight: 72.4 kg

DRUGS (30)
  1. SGN-35 (CAC10-VCMMAE) INJECTION [Suspect]
     Indication: HODGKIN'S DISEASE
     Dosage: 1.2 MG/KG, Q21D, INTRAVENOUS
     Route: 042
     Dates: start: 20110715
  2. MERREM [Concomitant]
  3. VANCOMYCIN [Concomitant]
  4. AMIODARONE (AMIODARONE HYDROCHLORIDE) [Concomitant]
  5. ACYCLOVIR [Concomitant]
  6. METOPROLOL TARTRATE [Concomitant]
  7. TESSALON [Concomitant]
  8. BENADRYL (DIPHENHYDROMINE HYDROCHLORIDE) [Concomitant]
  9. OSELTAMIVIR PHOSPHATE [Concomitant]
  10. ZAROXOLYN [Concomitant]
  11. COMBIVENT [Concomitant]
  12. HYDROCORTISON (HYDROCORTISONE SODIUM SUCCINATE) [Concomitant]
  13. INSULIN REGULAR (INSULIN BOVINE) [Concomitant]
  14. ALLOPURINOL [Concomitant]
  15. MYCAMINE (MICAFUNGIN SODIUM) [Concomitant]
  16. ACTIGALL [Concomitant]
  17. AMINO ACIDS [Concomitant]
  18. ATROVENT [Concomitant]
  19. SPIRONOLACTONE [Concomitant]
  20. SODIUM CHLORIDE 0.9% [Concomitant]
  21. ACETAMINOPHEN [Concomitant]
  22. COLACE (DOCUSATE SODIUM) [Concomitant]
  23. INSULIN LISPRO (INSULIN LISPRO) [Concomitant]
  24. VICODIN [Concomitant]
  25. POTASSIUM CHLORIDE [Concomitant]
  26. XOPENEX [Concomitant]
  27. PROPOFOL [Concomitant]
  28. NEUPOGEN [Concomitant]
  29. PANTOPRAZOLE [Concomitant]
  30. BACTRIM [Concomitant]

REACTIONS (8)
  - AORTIC ARTERIOSCLEROSIS [None]
  - CANDIDIASIS [None]
  - PULMONARY ALVEOLAR HAEMORRHAGE [None]
  - BLOOD BILIRUBIN INCREASED [None]
  - BLOOD PH INCREASED [None]
  - LUNG INFILTRATION [None]
  - BLOOD GLUCOSE INCREASED [None]
  - BLOOD LACTATE DEHYDROGENASE INCREASED [None]
